FAERS Safety Report 19684772 (Version 1)
Quarter: 2021Q3

REPORT INFORMATION
  Report Type: Spontaneous
  Country: US (occurrence: US)
  Receive Date: 20210810
  Receipt Date: 20210810
  Transmission Date: 20211014
  Serious: Yes (Hospitalization)
  Sender: FDA-Public Use
  Company Number: None

PATIENT
  Age: 68 Year
  Sex: Male
  Weight: 100.5 kg

DRUGS (2)
  1. GEMCITABINE HYDROCHLORIDE. [Suspect]
     Active Substance: GEMCITABINE HYDROCHLORIDE
     Dates: end: 20210722
  2. CISPLATIN. [Suspect]
     Active Substance: CISPLATIN
     Dates: end: 20210722

REACTIONS (18)
  - Blood potassium increased [None]
  - Nausea [None]
  - Arteriosclerosis coronary artery [None]
  - Oxygen saturation decreased [None]
  - Pulmonary embolism [None]
  - Abdominal pain [None]
  - Diverticulitis [None]
  - Blood gases abnormal [None]
  - Hypoxia [None]
  - Acute kidney injury [None]
  - Troponin increased [None]
  - Therapy interrupted [None]
  - Vomiting [None]
  - Mental status changes [None]
  - Confusional state [None]
  - Neutrophil count decreased [None]
  - General physical health deterioration [None]
  - Pleural effusion [None]

NARRATIVE: CASE EVENT DATE: 20210703
